FAERS Safety Report 12633235 (Version 2)
Quarter: 2016Q3

REPORT INFORMATION
  Report Type: Spontaneous
  Country: US (occurrence: US)
  Receive Date: 20160808
  Receipt Date: 20160808
  Transmission Date: 20161109
  Serious: No
  Sender: FDA-Public Use
  Company Number: US-BEH-2016059721

PATIENT
  Age: 64 Year
  Sex: Female
  Weight: 103 kg

DRUGS (36)
  1. HIZENTRA [Suspect]
     Active Substance: HUMAN IMMUNOGLOBULIN G
     Indication: IMMUNODEFICIENCY COMMON VARIABLE
     Route: 058
  2. HIZENTRA [Suspect]
     Active Substance: HUMAN IMMUNOGLOBULIN G
     Route: 058
  3. VITAMIN D [Concomitant]
     Active Substance: CHOLECALCIFEROL
  4. CALCIUM/MAGNESIUM/ZINC [Concomitant]
  5. TURMERIC [Concomitant]
     Active Substance: TURMERIC
  6. ATORVASTATIN [Concomitant]
     Active Substance: ATORVASTATIN
  7. VITAMIN B COMPLEX [Concomitant]
     Active Substance: CYANOCOBALAMIN\DEXPANTHENOL\NIACINAMIDE\PYRIDOXINE HYDROCHLORIDE\RIBOFLAVIN 5^-PHOSPHATE SODIUM\THIAMINE HYDROCHLORIDE\VITAMIN B COMPLEX
  8. ROPINIROLE. [Concomitant]
     Active Substance: ROPINIROLE
  9. CEPHALEXIN. [Concomitant]
     Active Substance: CEPHALEXIN
  10. GAS-X [Concomitant]
     Active Substance: DIMETHICONE
  11. CYMBALTA [Concomitant]
     Active Substance: DULOXETINE HYDROCHLORIDE
  12. CLONAZEPAM. [Concomitant]
     Active Substance: CLONAZEPAM
  13. LEVOTHYROXINE. [Concomitant]
     Active Substance: LEVOTHYROXINE
  14. TRAMADOL. [Concomitant]
     Active Substance: TRAMADOL
  15. SULFASALAZINE. [Concomitant]
     Active Substance: SULFASALAZINE
  16. FLECTOR [Concomitant]
     Active Substance: DICLOFENAC EPOLAMINE
  17. PULMICORT TURBUHALER [Concomitant]
     Active Substance: BUDESONIDE
  18. PLAQUENIL [Concomitant]
     Active Substance: HYDROXYCHLOROQUINE SULFATE
  19. LISINOPRIL. [Concomitant]
     Active Substance: LISINOPRIL
  20. VENTOLIN [Concomitant]
     Active Substance: ALBUTEROL SULFATE
  21. TRIFLURIDINE. [Concomitant]
     Active Substance: TRIFLURIDINE
  22. DAYPRO [Concomitant]
     Active Substance: OXAPROZIN
  23. HIZENTRA [Suspect]
     Active Substance: HUMAN IMMUNOGLOBULIN G
     Route: 058
  24. MINOCYCLINE [Concomitant]
     Active Substance: MINOCYCLINE\MINOCYCLINE HYDROCHLORIDE
  25. POTASSIUM CHLORIDE. [Concomitant]
     Active Substance: POTASSIUM CHLORIDE
  26. FISH OIL [Concomitant]
     Active Substance: FISH OIL
  27. TYLENOL EX-STR [Concomitant]
  28. EPIPEN [Concomitant]
     Active Substance: EPINEPHRINE
  29. ACYCLOVIR. [Concomitant]
     Active Substance: ACYCLOVIR
  30. ALENDRONATE [Concomitant]
     Active Substance: ALENDRONATE SODIUM
  31. ATENOLOL. [Concomitant]
     Active Substance: ATENOLOL
  32. NEURONTIN [Concomitant]
     Active Substance: GABAPENTIN
  33. NEXIUM [Concomitant]
     Active Substance: ESOMEPRAZOLE MAGNESIUM
  34. METHOTREXATE. [Concomitant]
     Active Substance: METHOTREXATE
  35. COMPLETE MULTIVITAMIN [Concomitant]
     Active Substance: VITAMINS
  36. DIPHENHYDRAMINE. [Concomitant]
     Active Substance: DIPHENHYDRAMINE

REACTIONS (1)
  - Herpes zoster [Unknown]

NARRATIVE: CASE EVENT DATE: 20151217
